FAERS Safety Report 8881283 (Version 1)
Quarter: 2012Q4

REPORT INFORMATION
  Report Type: 
  Country: FR (occurrence: FR)
  Receive Date: 20121031
  Receipt Date: 20121031
  Transmission Date: 20130627
  Serious: Yes (Hospitalization, Other)
  Sender: FDA-Public Use
  Company Number: FR-ASTRAZENECA-2012SE81013

PATIENT
  Sex: Female

DRUGS (12)
  1. INEXIUM [Suspect]
     Route: 048
  2. LEXOMIL [Suspect]
     Route: 048
     Dates: start: 201207
  3. CORDARONE [Interacting]
     Indication: PALPITATIONS
     Route: 048
     Dates: start: 2001
  4. CORDARONE [Interacting]
     Indication: PALPITATIONS
     Route: 048
     Dates: start: 20120715
  5. COUMADINE [Suspect]
     Indication: ARRHYTHMIA SUPRAVENTRICULAR
     Route: 048
     Dates: start: 20120716
  6. COUMADINE [Suspect]
     Indication: ARRHYTHMIA SUPRAVENTRICULAR
     Route: 048
     Dates: start: 20120719
  7. LOVENOX [Suspect]
     Indication: ARRHYTHMIA SUPRAVENTRICULAR
     Route: 058
     Dates: start: 20120715
  8. LOVENOX [Suspect]
     Indication: PALPITATIONS
     Route: 058
     Dates: start: 20120715
  9. BISOCE [Suspect]
     Route: 048
     Dates: start: 201207
  10. CALCIDIA [Suspect]
     Route: 048
     Dates: start: 201207
  11. KARDEGIC [Concomitant]
  12. MOVICOL [Concomitant]

REACTIONS (2)
  - Drug interaction [Unknown]
  - Abdominal wall haematoma [Recovering/Resolving]
